FAERS Safety Report 20986924 (Version 1)
Quarter: 2022Q2

REPORT INFORMATION
  Report Type: Spontaneous
  Country: US (occurrence: US)
  Receive Date: 20220621
  Receipt Date: 20220621
  Transmission Date: 20220721
  Serious: Yes (Death)
  Sender: FDA-Public Use
  Company Number: US-PFIZER INC-202200857229

PATIENT
  Age: 63 Year
  Sex: Female

DRUGS (3)
  1. IBRANCE [Suspect]
     Active Substance: PALBOCICLIB
     Indication: Breast cancer female
     Dosage: THREE WEEKS ON FOLLOWED BY ONE WEEK OFF
     Route: 048
     Dates: start: 20210114
  2. GABAPENTIN [Concomitant]
     Active Substance: GABAPENTIN
     Dosage: 200 MG, 2X/DAY (100MG, TWO CAPSULES IN THE MORNING, TWO CAPSULES IN THE EVENING, BY MOUTH)
     Route: 048
     Dates: start: 20220429
  3. DEXAMETHASONE [Concomitant]
     Active Substance: DEXAMETHASONE
     Dosage: 6 MG, DAILY (ONE TABLET EVERY DAY BY MOUTH FOR 7 DAYS)
     Route: 048
     Dates: start: 20220428

REACTIONS (1)
  - Death [Fatal]

NARRATIVE: CASE EVENT DATE: 20220526
